FAERS Safety Report 10196461 (Version 2)
Quarter: 2014Q2

REPORT INFORMATION
  Report Type: Spontaneous
  Country: JP (occurrence: JP)
  Receive Date: 20140527
  Receipt Date: 20140618
  Transmission Date: 20141212
  Serious: Yes (Other)
  Sender: FDA-Public Use
  Company Number: JP-JNJFOC-20140513293

PATIENT
  Age: 53 Year
  Sex: Male

DRUGS (13)
  1. REMICADE [Suspect]
     Indication: COLITIS ULCERATIVE
     Route: 042
     Dates: start: 20140517, end: 20140517
  2. REMICADE [Suspect]
     Indication: COLITIS ULCERATIVE
     Dosage: SIXTH DOSE
     Route: 042
     Dates: start: 20140322, end: 20140322
  3. REMICADE [Suspect]
     Indication: COLITIS ULCERATIVE
     Route: 042
     Dates: start: 20140125, end: 20140125
  4. REMICADE [Suspect]
     Indication: COLITIS ULCERATIVE
     Route: 042
     Dates: start: 20131123, end: 20131123
  5. REMICADE [Suspect]
     Indication: COLITIS ULCERATIVE
     Route: 042
     Dates: start: 20130930, end: 20130930
  6. REMICADE [Suspect]
     Indication: COLITIS ULCERATIVE
     Route: 042
     Dates: start: 20130902, end: 20130902
  7. REMICADE [Suspect]
     Indication: COLITIS ULCERATIVE
     Dosage: FIRST DOSE
     Route: 042
     Dates: start: 20130819, end: 20130819
  8. SALAZOPYRIN [Concomitant]
     Route: 048
     Dates: start: 20130802
  9. BIOFERMIN [Concomitant]
     Route: 048
  10. TRAMACET [Concomitant]
     Route: 048
  11. GLUFAST [Concomitant]
     Route: 048
  12. LANTUS [Concomitant]
     Route: 058
  13. HUMALOG [Concomitant]
     Route: 058

REACTIONS (10)
  - Tachycardia [Recovered/Resolved]
  - Electrocardiogram ST segment depression [Recovered/Resolved]
  - Diarrhoea [Recovered/Resolved]
  - Hyperhidrosis [Recovered/Resolved]
  - Palpitations [Recovered/Resolved]
  - Presyncope [Recovered/Resolved]
  - Hypokalaemia [Unknown]
  - Electrocardiogram QT prolonged [Unknown]
  - Infusion related reaction [Recovered/Resolved]
  - Feeling hot [Unknown]
